FAERS Safety Report 5176590-0 (Version None)
Quarter: 2006Q4

REPORT INFORMATION
  Report Type: 
  Country: None (occurrence: None)
  Receive Date: 20061207
  Receipt Date: 20061128
  Transmission Date: 20070319
  Serious: Yes (Death)
  Sender: FDA-Public Use
  Company Number: 2006113873

PATIENT
  Age: 62 Year
  Sex: Male
  Weight: 60 kg

DRUGS (12)
  1. SUTENT [Suspect]
     Indication: RENAL CELL CARCINOMA STAGE UNSPECIFIED
     Dosage: 50 MG (50 MG, 1 IN 1 D); ORAL; 37.5 (37.5 MG I1 IN 1 D); ORAL
     Route: 048
     Dates: start: 20060107, end: 20060203
  2. SUTENT [Suspect]
     Indication: RENAL CELL CARCINOMA STAGE UNSPECIFIED
     Dosage: 50 MG (50 MG, 1 IN 1 D); ORAL; 37.5 (37.5 MG I1 IN 1 D); ORAL
     Route: 048
     Dates: start: 20060218, end: 20060623
  3. RABEPRAZOLE SODIUM [Concomitant]
  4. GELOX (ALUMINIUM HYDROXIDE, ALUMINIUM SILICATE, MAGNESIUM HYDROXIDE) [Concomitant]
  5. MACROGOL [Concomitant]
  6. FENTANYL [Concomitant]
  7. MORPHINE SULFATE [Concomitant]
  8. PREDNISONE TAB [Concomitant]
  9. OMEPRAZOLE [Concomitant]
  10. POTASSIUM CHLORIDE [Concomitant]
  11. ACETAMINOPHEN [Concomitant]
  12. CHLORPROMAZINE [Concomitant]

REACTIONS (1)
  - PERFORMANCE STATUS DECREASED [None]
